FAERS Safety Report 4697700-5 (Version None)
Quarter: 2005Q2

REPORT INFORMATION
  Report Type: 
  Country: None (occurrence: None)
  Receive Date: 20050622
  Receipt Date: 20050609
  Transmission Date: 20051028
  Serious: Yes (Hospitalization, Other)
  Sender: FDA-Public Use
  Company Number: 2003113752

PATIENT
  Age: 52 Year
  Sex: Female

DRUGS (20)
  1. LIPITOR [Suspect]
     Indication: BLOOD CHOLESTEROL INCREASED
     Dates: start: 20011001, end: 20020201
  2. MAXALT [Concomitant]
  3. ZIAC [Concomitant]
  4. CLARITIN [Concomitant]
  5. ACETYLSALICYLIC ACID SRT [Concomitant]
  6. VAGIFEM [Concomitant]
  7. PREVIDENT (SODIUM (FLUORIDE) [Concomitant]
  8. BUSPIRONE HCL [Concomitant]
  9. VICOPROFEN [Concomitant]
  10. AMOXICILLIN [Concomitant]
  11. ZETIA [Concomitant]
  12. ALLEGRA-D [Concomitant]
  13. NITROQUICK (GLYCERYL TRINITRATE) [Concomitant]
  14. LISINOPRIL [Concomitant]
  15. TOPROL-XL [Concomitant]
  16. PLAVIX [Concomitant]
  17. CRESTOR [Concomitant]
  18. RANITIDINE HCL [Concomitant]
  19. METOCLOPRAMIDE [Concomitant]
  20. ACETAMINOPHE W/ CODEINE (CODEINE,  PARACETAMOL ) [Concomitant]

REACTIONS (41)
  - ARTHRALGIA [None]
  - BACK PAIN [None]
  - BLOOD CHOLESTEROL INCREASED [None]
  - DISCOMFORT [None]
  - ECCHYMOSIS [None]
  - ECONOMIC PROBLEM [None]
  - EMOTIONAL DISTRESS [None]
  - EYE INFLAMMATION [None]
  - EYE PRURITUS [None]
  - EYE SWELLING [None]
  - FATIGUE [None]
  - HYPERLIPIDAEMIA [None]
  - HYPERSENSITIVITY [None]
  - HYPERTENSION [None]
  - INJURY [None]
  - INSOMNIA [None]
  - IRRITABILITY [None]
  - LIPIDS INCREASED [None]
  - LOW DENSITY LIPOPROTEIN INCREASED [None]
  - METRORRHAGIA [None]
  - MIGRAINE [None]
  - MUSCLE STRAIN [None]
  - MUSCULOSKELETAL STIFFNESS [None]
  - MYALGIA [None]
  - MYOCARDIAL INFARCTION [None]
  - NEUTROPHIL COUNT INCREASED [None]
  - OPTIC ISCHAEMIC NEUROPATHY [None]
  - PAIN [None]
  - PAIN IN EXTREMITY [None]
  - PAPILLOEDEMA [None]
  - POST PROCEDURAL COMPLICATION [None]
  - PRURITUS [None]
  - PYREXIA [None]
  - SEASONAL ALLERGY [None]
  - SINUS BRADYCARDIA [None]
  - SINUS CONGESTION [None]
  - SPLINTER HAEMORRHAGES [None]
  - TENDON INJURY [None]
  - THERAPY NON-RESPONDER [None]
  - VASCULITIS [None]
  - VENTRICULAR TACHYCARDIA [None]
